FAERS Safety Report 14164554 (Version 1)
Quarter: 2017Q4

REPORT INFORMATION
  Report Type: Spontaneous
  Country: US (occurrence: US)
  Receive Date: 20171107
  Receipt Date: 20171107
  Transmission Date: 20180321
  Serious: Yes (Hospitalization)
  Sender: FDA-Public Use
  Company Number: US-SHIRE-US201727416

PATIENT
  Age: 29 Year
  Sex: Female

DRUGS (1)
  1. GATTEX [Suspect]
     Active Substance: TEDUGLUTIDE\WATER
     Indication: SHORT-BOWEL SYNDROME
     Dosage: 0.419 ML, UNK
     Route: 065
     Dates: start: 20161014

REACTIONS (1)
  - Pain [Unknown]

NARRATIVE: CASE EVENT DATE: 20171006
